FAERS Safety Report 22598267 (Version 1)
Quarter: 2023Q2

REPORT INFORMATION
  Report Type: Spontaneous
  Country: US (occurrence: US)
  Receive Date: 20230614
  Receipt Date: 20230614
  Transmission Date: 20230721
  Serious: No
  Sender: FDA-Public Use
  Company Number: US-ARDELYX-2023ARDX000275

PATIENT

DRUGS (1)
  1. IBSRELA [Suspect]
     Active Substance: TENAPANOR HYDROCHLORIDE
     Indication: Product used for unknown indication
     Dosage: UNK
     Route: 065

REACTIONS (5)
  - Incontinence [Unknown]
  - Faeces soft [Unknown]
  - Headache [Unknown]
  - Diarrhoea [Unknown]
  - Therapeutic product effect variable [Unknown]
